FAERS Safety Report 6532771-2 (Version None)
Quarter: 2010Q1

REPORT INFORMATION
  Report Type: 
  Country: None (occurrence: None)
  Receive Date: 20100111
  Receipt Date: 20100105
  Transmission Date: 20100710
  Serious: Yes (Death, Hospitalization, Other)
  Sender: FDA-Public Use
  Company Number: PHHY2010MX00621

PATIENT
  Sex: Female

DRUGS (1)
  1. TRILEPTAL [Suspect]
     Dosage: 4 ML/DAY
     Route: 048
     Dates: start: 20070401

REACTIONS (6)
  - CONVULSION [None]
  - DEATH [None]
  - PYREXIA [None]
  - STAPHYLOCOCCAL INFECTION [None]
  - VARICELLA [None]
  - VOMITING [None]
